FAERS Safety Report 22643351 (Version 1)
Quarter: 2023Q2

REPORT INFORMATION
  Report Type: Other
  Country: IE (occurrence: NL)
  Receive Date: 20230627
  Receipt Date: 20230627
  Transmission Date: 20230721
  Serious: Yes (Other)
  Sender: FDA-Public Use
  Company Number: NL-DEXPHARM-20231549

PATIENT
  Age: 53 Year
  Sex: Female

DRUGS (3)
  1. OMEPRAZOLE [Suspect]
     Active Substance: OMEPRAZOLE
  2. CIPROFLOXACIN [Suspect]
     Active Substance: CIPROFLOXACIN
  3. PAROXETINE [Suspect]
     Active Substance: PAROXETINE

REACTIONS (1)
  - Electrocardiogram QT prolonged [Unknown]
